FAERS Safety Report 5452245-X (Version None)
Quarter: 2007Q3

REPORT INFORMATION
  Report Type: 
  Country: None (occurrence: None)
  Receive Date: 20070912
  Receipt Date: 20070912
  Transmission Date: 20080115
  Serious: Yes (Hospitalization, Disabling, Other)
  Sender: FDA-Public Use
  Company Number: None

PATIENT
  Age: 70 Year
  Sex: Female
  Weight: 78.4723 kg

DRUGS (1)
  1. BETAXOLOL [Suspect]
     Indication: HYPERTENSION
     Dosage: 1 DAILY

REACTIONS (13)
  - ANXIETY [None]
  - ASTHENIA [None]
  - BALANCE DISORDER [None]
  - CONDITION AGGRAVATED [None]
  - DIZZINESS [None]
  - EYE DISORDER [None]
  - EYE SWELLING [None]
  - FATIGUE [None]
  - GAIT DISTURBANCE [None]
  - HEADACHE [None]
  - MALAISE [None]
  - PERIPHERAL COLDNESS [None]
  - VISUAL DISTURBANCE [None]
